FAERS Safety Report 8337261-2 (Version None)
Quarter: 2012Q2

REPORT INFORMATION
  Report Type: 
  Country: None (occurrence: None)
  Receive Date: 20120504
  Receipt Date: 20120424
  Transmission Date: 20120825
  Serious: Yes (Hospitalization)
  Sender: FDA-Public Use
  Company Number: US-JNJFOC-20120411743

PATIENT
  Sex: Female
  Weight: 68.7 kg

DRUGS (12)
  1. HUMIRA [Concomitant]
     Dates: start: 20080814
  2. FOLIC ACID [Concomitant]
  3. PROBIOTICS [Concomitant]
  4. ALPRAZOLAM [Concomitant]
  5. PREDNISONE TAB [Concomitant]
  6. CIMZIA [Concomitant]
     Dates: start: 20080625
  7. MESALAMINE [Concomitant]
     Route: 048
  8. REMICADE [Suspect]
     Indication: INFLAMMATORY BOWEL DISEASE
     Route: 042
     Dates: start: 20070410
  9. M.V.I. [Concomitant]
  10. OMEPRAZOLE [Concomitant]
  11. PAROXETINE [Concomitant]
  12. VITAMIN D [Concomitant]

REACTIONS (1)
  - NEPHROLITHIASIS [None]
